FAERS Safety Report 22228882 (Version 5)
Quarter: 2024Q3

REPORT INFORMATION
  Report Type: Spontaneous
  Country: US (occurrence: US)
  Receive Date: 20230419
  Receipt Date: 20240926
  Transmission Date: 20241017
  Serious: Yes (Other)
  Sender: PFIZER
  Company Number: US-PFIZER INC-PV202300070216

PATIENT
  Age: 68 Year
  Sex: Female
  Weight: 89.81 kg

DRUGS (4)
  1. IBRANCE [Suspect]
     Active Substance: PALBOCICLIB
     Indication: Breast cancer metastatic
     Dosage: 100 MG, 1X/DAY
  2. IBRANCE [Suspect]
     Active Substance: PALBOCICLIB
     Dosage: DAILY FOR 21 DAYS ON 7 DAYS OFF
  3. LETROZOLE [Concomitant]
     Active Substance: LETROZOLE
     Dosage: UNK
  4. PROBIOTICS NOS [Concomitant]
     Active Substance: PROBIOTICS NOS
     Dosage: UNK

REACTIONS (3)
  - Oral surgery [Unknown]
  - COVID-19 [Unknown]
  - Dizziness [Unknown]
